FAERS Safety Report 7311634-9 (Version None)
Quarter: 2011Q1

REPORT INFORMATION
  Report Type: 
  Country: None (occurrence: None)
  Receive Date: 20110215
  Receipt Date: 20110215
  Transmission Date: 20110831
  Serious: Yes (Other)
  Sender: FDA-Public Use
  Company Number: None

PATIENT
  Age: 84 Year
  Sex: Male
  Weight: 86.1834 kg

DRUGS (2)
  1. LEVAQUIN [Suspect]
     Indication: INFLUENZA
     Dosage: 5 TABLETS 1 DAILY ORAL
     Route: 048
     Dates: start: 20101202, end: 20101207
  2. LEVAQUIN [Suspect]
     Indication: RESPIRATORY DISORDER
     Dosage: 5 TABLETS 1 DAILY ORAL
     Route: 048
     Dates: start: 20101202, end: 20101207

REACTIONS (4)
  - FALL [None]
  - PAIN [None]
  - TENDON DISORDER [None]
  - DIZZINESS [None]
